FAERS Safety Report 14841982 (Version 2)
Quarter: 2018Q2

REPORT INFORMATION
  Report Type: Other
  Country: US (occurrence: US)
  Receive Date: 20180503
  Receipt Date: 20180606
  Transmission Date: 20180711
  Serious: Yes (Other)
  Sender: FDA-Public Use
  Company Number: US-SHEFFIELD PHARMACEUTICALS, LLC-2047093

PATIENT
  Sex: Female

DRUGS (1)
  1. HONGO KILLER (TOLNAFTATE) [Suspect]
     Active Substance: TOLNAFTATE
     Route: 061

REACTIONS (1)
  - Musculoskeletal disorder [Unknown]
